FAERS Safety Report 6139545-5 (Version None)
Quarter: 2009Q1

REPORT INFORMATION
  Report Type: 
  Country: None (occurrence: None)
  Receive Date: 20090324
  Receipt Date: 20090324
  Transmission Date: 20090719
  Serious: Yes (Hospitalization)
  Sender: FDA-Public Use
  Company Number: CLOF-1000328

PATIENT
  Age: 9 Year
  Sex: Male
  Weight: 25.2 kg

DRUGS (11)
  1. CLOLAR [Suspect]
     Indication: ACUTE MYELOID LEUKAEMIA
     Dosage: 19.8 MG, QDX3, INTRAVENOUS
     Route: 042
     Dates: start: 20081022, end: 20081024
  2. CLOLAR [Suspect]
     Indication: ACUTE MYELOID LEUKAEMIA
     Dosage: 19.8 MG, QDX3, INTRAVENOUS
     Route: 042
     Dates: start: 20081029, end: 20081031
  3. CLOLAR [Suspect]
     Indication: ACUTE MYELOID LEUKAEMIA
     Dosage: 19.8 MG, QDX3, INTRAVENOUS
     Route: 042
     Dates: start: 20081217, end: 20081219
  4. CLOLAR [Suspect]
     Indication: ACUTE MYELOID LEUKAEMIA
     Dosage: 19.8 MG, QDX3, INTRAVENOUS
     Route: 042
     Dates: start: 20081224, end: 20081226
  5. CYCLOPHOSPHAMIDE [Suspect]
     Indication: ACUTE MYELOID LEUKAEMIA
     Dosage: SEE IMAGE
     Route: 042
     Dates: start: 20081021, end: 20081022
  6. CYCLOPHOSPHAMIDE [Suspect]
     Indication: ACUTE MYELOID LEUKAEMIA
     Dosage: SEE IMAGE
     Route: 042
     Dates: start: 20081023, end: 20081024
  7. CYCLOPHOSPHAMIDE [Suspect]
     Indication: ACUTE MYELOID LEUKAEMIA
     Dosage: SEE IMAGE
     Route: 042
     Dates: start: 20081029, end: 20081031
  8. CYCLOPHOSPHAMIDE [Suspect]
     Indication: ACUTE MYELOID LEUKAEMIA
     Dosage: SEE IMAGE
     Route: 042
     Dates: start: 20081217, end: 20081219
  9. CYCLOPHOSPHAMIDE [Suspect]
     Indication: ACUTE MYELOID LEUKAEMIA
     Dosage: SEE IMAGE
     Route: 042
     Dates: start: 20081224, end: 20081226
  10. ONDANSETRON (ONDANSETRON) TABLET [Concomitant]
  11. ALLOPURINOL [Concomitant]

REACTIONS (15)
  - ABDOMINAL PAIN [None]
  - ANAEMIA [None]
  - BONE MARROW FAILURE [None]
  - CELLULITIS ORBITAL [None]
  - DACRYOCYSTITIS [None]
  - DRUG TOXICITY [None]
  - FOREIGN BODY TRAUMA [None]
  - HEADACHE [None]
  - LEUKOPENIA [None]
  - LYMPHOPENIA [None]
  - NEUTROPENIA [None]
  - PAIN IN EXTREMITY [None]
  - SENSATION OF FOREIGN BODY [None]
  - THROMBOCYTOPENIA [None]
  - VOMITING [None]
